FAERS Safety Report 8970819 (Version 2)
Quarter: 2013Q1

REPORT INFORMATION
  Report Type: Report from Study
  Country: DE (occurrence: DE)
  Receive Date: 20121218
  Receipt Date: 20130207
  Transmission Date: 20140127
  Serious: Yes (Other)
  Sender: FDA-Public Use
  Company Number: DE-BAYER-2012-132276

PATIENT
  Sex: Female
  Weight: 66 kg

DRUGS (2)
  1. BETAFERON [Suspect]
     Indication: MULTIPLE SCLEROSIS
     Dosage: 250 ?G, QOD
     Dates: start: 20110823
  2. L-THYROXIN [Concomitant]
     Indication: HYPOTHYROIDISM
     Dosage: DAILY DOSE 100 ?G
     Route: 048

REACTIONS (1)
  - Exposure during pregnancy [None]
